FAERS Safety Report 8270669 (Version 3)
Quarter: 2013Q3

REPORT INFORMATION
  Report Type: Spontaneous
  Country: FR (occurrence: FR)
  Receive Date: 20111201
  Receipt Date: 20130829
  Transmission Date: 20140515
  Serious: Yes (Other)
  Sender: FDA-Public Use
  Company Number: FR-EISAI INC-E2090-01879-SPO-FR

PATIENT
  Age: 46 Year
  Sex: Male

DRUGS (2)
  1. ZONISAMIDE [Suspect]
     Indication: EPILEPSY
     Dosage: UNKNOWN
     Route: 048
     Dates: start: 200909
  2. URBANYL [Concomitant]

REACTIONS (2)
  - Malnutrition [Not Recovered/Not Resolved]
  - Weight decreased [Unknown]
